FAERS Safety Report 14543715 (Version 3)
Quarter: 2019Q2

REPORT INFORMATION
  Report Type: Report from Study
  Country: CH (occurrence: CH)
  Receive Date: 20180216
  Receipt Date: 20190619
  Transmission Date: 20190711
  Serious: Yes (Death, Hospitalization, Other)
  Sender: FDA-Public Use
  Company Number: CH-009507513-1801CHE006799

PATIENT
  Age: 2 Year
  Sex: Female
  Weight: 10 kg

DRUGS (49)
  1. PREVYMIS [Suspect]
     Active Substance: LETERMOVIR
     Dosage: 36 MILLIGRAM/KILOGRAM QD
     Route: 042
     Dates: start: 20180203, end: 20180204
  2. MILRINONE [Concomitant]
     Active Substance: MILRINONE
     Indication: CARDIAC FAILURE
     Dosage: 0.3-0.7MCG/KG.MIN
     Route: 042
     Dates: start: 20180106, end: 20180203
  3. CHLORAL HYDRATE [Concomitant]
     Active Substance: CHLORAL HYDRATE
     Indication: SEDATION
     Dosage: 600-1200MG, ROUTE REPORTED AS ^SND^
     Dates: start: 20180106, end: 20180204
  4. ACETAZOLAMIDE. [Concomitant]
     Active Substance: ACETAZOLAMIDE
     Indication: METABOLIC ALKALOSIS
     Dosage: 100 MG, UNK
     Route: 042
     Dates: start: 20180122, end: 20180122
  5. CALCIUM CHLORIDE. [Concomitant]
     Active Substance: CALCIUM CHLORIDE
     Indication: PRODUCT SUBSTITUTION
     Dosage: UNK
     Dates: start: 20180202, end: 20180205
  6. PREVYMIS [Suspect]
     Active Substance: LETERMOVIR
     Dosage: 24 MILLIGRAM/KILOGRAM QD
     Route: 042
     Dates: start: 20180125, end: 20180128
  7. MIDAZOLAM [Concomitant]
     Active Substance: MIDAZOLAM HYDROCHLORIDE
     Indication: SEDATION
     Dosage: 24-48MG INJECTION
     Route: 042
     Dates: start: 20180106, end: 20180206
  8. MEROPENEM. [Concomitant]
     Active Substance: MEROPENEM
     Dosage: 1200 MG
     Route: 042
     Dates: start: 20180204
  9. PROPOFOL. [Concomitant]
     Active Substance: PROPOFOL
     Indication: SEDATION
     Dosage: 30 MG, UNK
     Route: 042
     Dates: start: 20180128, end: 20180128
  10. LABETALOL HYDROCHLORIDE. [Concomitant]
     Active Substance: LABETALOL HYDROCHLORIDE
     Indication: HYPERTENSION
     Dosage: 200 MG, ROUTE REPORTED AS ^SND^
     Dates: start: 20180203, end: 20180204
  11. PREVYMIS [Suspect]
     Active Substance: LETERMOVIR
     Indication: PNEUMONIA CYTOMEGALOVIRAL
     Dosage: 7 MG/KG INJECTION ONCE PER DAY
     Route: 042
     Dates: start: 20180117, end: 20180118
  12. CLONIDINE. [Concomitant]
     Active Substance: CLONIDINE
     Indication: SEDATION
     Dosage: 1-2MCG/KG.H
     Route: 042
     Dates: start: 20180106, end: 20180117
  13. FENTANYL. [Concomitant]
     Active Substance: FENTANYL
     Indication: ANALGESIC THERAPY
     Dosage: 5-10MCG/KG.H
     Route: 042
     Dates: start: 20180116, end: 20180206
  14. MORPHINE [Concomitant]
     Active Substance: MORPHINE
     Indication: ANALGESIC THERAPY
     Dosage: UP TO 40MG/DAY
     Route: 042
     Dates: start: 20180106, end: 20180206
  15. CLORAZEPATE DIPOTASSIUM. [Concomitant]
     Active Substance: CLORAZEPATE DIPOTASSIUM
     Indication: SEDATION
     Dosage: 15 MG, ROUTE REPORTED AS ^SND^
     Dates: start: 20180124, end: 20180124
  16. MEROPENEM. [Concomitant]
     Active Substance: MEROPENEM
     Indication: INFECTION
     Dosage: 1200MG
     Route: 042
     Dates: start: 20180118, end: 20180122
  17. LORAZEPAM. [Concomitant]
     Active Substance: LORAZEPAM
     Indication: SEDATION
     Dosage: UP TO 4,5MG
     Route: 042
     Dates: start: 20180118, end: 20180122
  18. PREVYMIS [Suspect]
     Active Substance: LETERMOVIR
     Dosage: 15 MILLIGRAM/KILOGRAM QD
     Route: 042
     Dates: start: 20180122, end: 20180124
  19. ACETAMINOPHEN. [Concomitant]
     Active Substance: ACETAMINOPHEN
     Indication: ANALGESIC THERAPY
     Dosage: 600 MG, UNK
     Route: 042
     Dates: start: 20180110, end: 20180119
  20. SULFAMETHOXAZOLE (+) TRIMETHOPRIM [Concomitant]
     Active Substance: SULFAMETHOXAZOLE\TRIMETHOPRIM
     Indication: ANTIFUNGAL PROPHYLAXIS
     Dosage: 50MG/DAY, 3X/WEEK, ROUTE REPORTED AS SND
     Dates: start: 20180106, end: 20180206
  21. PROPOFOL. [Concomitant]
     Active Substance: PROPOFOL
     Dosage: UP TO 4MG/KG.H
     Route: 042
     Dates: start: 20180204, end: 20180207
  22. FOSCARNET SODIUM. [Concomitant]
     Active Substance: FOSCARNET SODIUM
     Dosage: 1800MG
     Route: 042
     Dates: start: 20180127, end: 20180206
  23. CHLORPROMAZINE. [Concomitant]
     Active Substance: CHLORPROMAZINE
     Indication: SEDATION
     Dosage: 40 MG, UNK
     Route: 042
     Dates: start: 20180121, end: 20180125
  24. SPIRONOLACTONE. [Concomitant]
     Active Substance: SPIRONOLACTONE
     Dosage: 20-30MG
     Route: 042
     Dates: start: 20180110, end: 20180206
  25. VANCOMYCIN [Concomitant]
     Active Substance: VANCOMYCIN
     Dosage: 350MG/DAY
     Dates: start: 20180204, end: 20180206
  26. CASPOFUNGIN ACETATE. [Concomitant]
     Active Substance: CASPOFUNGIN ACETATE
     Indication: INFECTION
     Dosage: 24 MG/ DAY
     Route: 042
     Dates: start: 20180123, end: 20180206
  27. DIAZEPAM. [Concomitant]
     Active Substance: DIAZEPAM
     Indication: SEDATION
     Dosage: UP TO 7,5MG/DAY, ROUTE REPORTED AS ^SND^
     Dates: start: 20180125, end: 20180203
  28. FORTAM [Concomitant]
     Active Substance: CEFTAZIDIME
     Dosage: UNK
     Route: 042
     Dates: start: 20180123, end: 20180201
  29. PREVYMIS [Suspect]
     Active Substance: LETERMOVIR
     Dosage: 24 MILLIGRAM/KILOGRAM QD
     Route: 042
     Dates: start: 20180201, end: 20180202
  30. DOPAMINE [Concomitant]
     Active Substance: DOPAMINE\DOPAMINE HYDROCHLORIDE
     Indication: RENAL DISORDER
     Dosage: 3MCG/KG. MIN
     Route: 042
     Dates: start: 20180106, end: 20180125
  31. DIHYDRALAZINE SULFATE [Concomitant]
     Active Substance: DIHYDRALAZINE SULFATE
     Indication: HYPERTENSION
     Dosage: 0.3-0.6MG/DOSE ON DEMAND
     Route: 042
  32. DEXMEDETOMIDINE. [Concomitant]
     Active Substance: DEXMEDETOMIDINE
     Indication: SEDATION
     Dosage: 0.3-1.5MCG/KG.H
     Route: 042
     Dates: start: 20180117, end: 20180206
  33. ACETYLCYSTEINE. [Concomitant]
     Active Substance: ACETYLCYSTEINE
     Dosage: 300 MG, UNK
     Route: 042
     Dates: start: 20180106, end: 20180206
  34. KETAMINE [Concomitant]
     Active Substance: KETAMINE
     Indication: SEDATION
     Dosage: 20 MG, UNK
     Route: 042
     Dates: start: 20180206, end: 20180206
  35. PREVYMIS [Suspect]
     Active Substance: LETERMOVIR
     Dosage: 10 MG/KG INJECTION QD
     Route: 042
     Dates: start: 20180119, end: 20180121
  36. HEPARIN [Concomitant]
     Active Substance: HEPARIN SODIUM
     Indication: ANTICOAGULANT THERAPY
     Dosage: 13-23 UL/KG.H
     Route: 042
     Dates: start: 20180106, end: 20180206
  37. MAGNESIUM CHLORIDE. [Concomitant]
     Active Substance: MAGNESIUM CHLORIDE
     Indication: PRODUCT SUBSTITUTION
     Dosage: 4MMOL
     Route: 042
     Dates: start: 20180106, end: 20180122
  38. ACETAZOLAMIDE. [Concomitant]
     Active Substance: ACETAZOLAMIDE
     Dosage: 100 MG, UNK
     Route: 042
     Dates: start: 20180126, end: 20180126
  39. CLONAZEPAM. [Concomitant]
     Active Substance: CLONAZEPAM
     Indication: SEDATION
     Dosage: 4 MG, ROUTE REPORTED AS ^SND^
     Dates: start: 20180204, end: 20180204
  40. PREVYMIS [Suspect]
     Active Substance: LETERMOVIR
     Dosage: 24 MILLIGRAM/KILOGRAM BID
     Route: 042
     Dates: start: 20180205, end: 20180206
  41. FENTANYL. [Concomitant]
     Active Substance: FENTANYL
     Indication: SEDATION
  42. FUROSEMIDE. [Concomitant]
     Active Substance: FUROSEMIDE
     Indication: OEDEMA
     Dosage: 3-6MG/H
     Route: 042
     Dates: start: 20180116, end: 20180206
  43. FOSCARNET SODIUM. [Concomitant]
     Active Substance: FOSCARNET SODIUM
     Dosage: 1800 MG
     Route: 042
     Dates: start: 20180110, end: 20180118
  44. ROCURONIUM BROMIDE. [Concomitant]
     Active Substance: ROCURONIUM BROMIDE
     Indication: PARALYSIS
     Dosage: 10MG WHEN NEEDED UP TO 10X/DAY
     Route: 042
     Dates: start: 20180106, end: 20180122
  45. MORPHINE [Concomitant]
     Active Substance: MORPHINE
     Indication: SEDATION
  46. VANCOMYCIN [Concomitant]
     Active Substance: VANCOMYCIN
     Indication: INFECTION
     Dosage: 300 MG, UNK
     Route: 042
     Dates: start: 20180118, end: 20180120
  47. OMEPRAZOLE. [Concomitant]
     Active Substance: OMEPRAZOLE
     Dosage: 10 MG, UNK
     Dates: start: 20180127
  48. MAGNESIUM GLUCONATE [Concomitant]
     Active Substance: MAGNESIUM GLUCONATE
     Indication: PRODUCT SUBSTITUTION
     Dosage: 3.6 MMOL, ROUTE REPORTED AS ^SND^
     Dates: start: 20180130, end: 20180204
  49. CHLORPROTHIXENE [Concomitant]
     Active Substance: CHLORPROTHIXENE
     Indication: SEDATION
     Dosage: 25 MG, ROUTE REPORTED AS ^SND^
     Dates: start: 20180203, end: 20180203

REACTIONS (3)
  - Cerebral haemorrhage [Fatal]
  - Pneumonia cytomegaloviral [Unknown]
  - Off label use [Unknown]

NARRATIVE: CASE EVENT DATE: 2018
